FAERS Safety Report 4844069-9 (Version None)
Quarter: 2005Q4

REPORT INFORMATION
  Report Type: 
  Country: None (occurrence: None)
  Receive Date: 20051202
  Receipt Date: 20050225
  Transmission Date: 20060501
  Serious: Yes (Other)
  Sender: FDA-Public Use
  Company Number: JP-ROCHE-397333

PATIENT
  Age: 66 Year
  Sex: Male

DRUGS (20)
  1. TAMIFLU [Suspect]
     Route: 048
     Dates: start: 20050207, end: 20050207
  2. METHAPHYLLIN [Concomitant]
     Route: 048
  3. ELIETEN [Concomitant]
     Route: 048
  4. STROCAIN [Concomitant]
     Route: 048
  5. NEUROVITAN [Concomitant]
     Route: 048
  6. SULPIRIDE [Concomitant]
     Route: 048
  7. KOLANTYL [Concomitant]
     Route: 048
  8. NORPACE [Concomitant]
     Route: 048
  9. UNSPECIFIED DRUG [Concomitant]
     Dosage: REPORTED AS HECT M
     Route: 048
  10. PHENOBARBITAL [Concomitant]
     Route: 048
  11. CONTOL [Concomitant]
     Route: 048
  12. DIAZEPAM [Concomitant]
     Dosage: REPORTED AS SERENAMIN (DIAZEPAM)
     Route: 048
  13. RANITIDINE HYDROCHLORIDE [Concomitant]
     Dosage: REPORTED AS RADEN (RANITIDINE HYDROCHLORIDE)
     Route: 048
  14. PL [Concomitant]
     Route: 048
  15. KEJIFEN [Concomitant]
     Route: 048
  16. MUCOSOLATE [Concomitant]
     Route: 048
  17. APRICOT KERNEL WATER [Concomitant]
     Route: 048
  18. BROCIN [Concomitant]
     Route: 048
  19. SIMPLE SYRUP [Concomitant]
     Route: 048
  20. FLAVIN ADENIN DINUCLEOTIDE [Concomitant]
     Dosage: DOSAGE ADJUSTED
     Route: 031

REACTIONS (6)
  - BLOOD PRESSURE DECREASED [None]
  - BLOOD PRESSURE INCREASED [None]
  - CYANOSIS [None]
  - DYSPNOEA [None]
  - PALLOR [None]
  - SUPRAVENTRICULAR TACHYCARDIA [None]
